FAERS Safety Report 20100258 (Version 1)
Quarter: 2021Q4

REPORT INFORMATION
  Report Type: Other
  Country: CA (occurrence: CA)
  Receive Date: 20211123
  Receipt Date: 20211123
  Transmission Date: 20220303
  Serious: Yes (Death)
  Sender: FDA-Public Use
  Company Number: CA-CELLTRION INC.-2021CA015743

PATIENT

DRUGS (9)
  1. RITUXIMAB [Suspect]
     Active Substance: RITUXIMAB
     Indication: Vasculitis
     Dosage: 1000 MILLIGRAM
     Route: 042
  2. ACETYLSALICYLIC ACID [Concomitant]
     Dosage: 90 MILLIGRAM
  3. CALCIUM [Concomitant]
     Active Substance: CALCIUM
  4. HYDROCHLOROTHIAZIDE [Concomitant]
     Active Substance: HYDROCHLOROTHIAZIDE
  5. NEUPOGEN [Concomitant]
     Active Substance: FILGRASTIM
  6. PROLIA [Concomitant]
     Active Substance: DENOSUMAB
     Dosage: PRE-FILLED SYRINGE PRESERVATIVE-FREE
  7. ROSUVASTATIN [Concomitant]
     Active Substance: ROSUVASTATIN
     Route: 058
  8. TRIAMTERENE [Concomitant]
     Active Substance: TRIAMTERENE
  9. VITAMIN B12 [Concomitant]
     Active Substance: CYANOCOBALAMIN

REACTIONS (1)
  - Death [Fatal]
